FAERS Safety Report 10220630 (Version 2)
Quarter: 2014Q2

REPORT INFORMATION
  Report Type: Report from Study
  Country: VN (occurrence: VN)
  Receive Date: 20140606
  Receipt Date: 20140610
  Transmission Date: 20141212
  Serious: Yes (Death, Other)
  Sender: FDA-Public Use
  Company Number: VN-ROCHE-1408929

PATIENT
  Sex: 0

DRUGS (5)
  1. MYCOPHENOLATE MOFETIL [Suspect]
     Indication: PROPHYLAXIS AGAINST TRANSPLANT REJECTION
     Route: 065
  2. CYCLOSPORIN A [Suspect]
     Indication: PROPHYLAXIS AGAINST TRANSPLANT REJECTION
     Route: 065
  3. TACROLIMUS [Suspect]
     Indication: PROPHYLAXIS AGAINST TRANSPLANT REJECTION
     Route: 065
  4. AZATHIOPRINE [Suspect]
     Indication: PROPHYLAXIS AGAINST TRANSPLANT REJECTION
     Route: 065
  5. BASILIXIMAB [Suspect]
     Indication: PROPHYLAXIS AGAINST TRANSPLANT REJECTION
     Route: 065

REACTIONS (13)
  - Infection [Fatal]
  - Urinary tract infection [Unknown]
  - Hepatitis B [Unknown]
  - Cytomegalovirus infection [Unknown]
  - Tuberculosis [Unknown]
  - Pneumonia [Unknown]
  - Post herpetic neuralgia [Unknown]
  - Varicella [Unknown]
  - Skin infection [Unknown]
  - Brain abscess [Unknown]
  - Fungal infection [Unknown]
  - Hepatitis C [Unknown]
  - Bronchitis [Unknown]
